FAERS Safety Report 8161694-0 (Version None)
Quarter: 2012Q1

REPORT INFORMATION
  Report Type: 
  Country: None (occurrence: None)
  Receive Date: 20120224
  Receipt Date: 20110114
  Transmission Date: 20120608
  Serious: No
  Sender: FDA-Public Use
  Company Number: US-BRISTOL-MYERS SQUIBB COMPANY-15416266

PATIENT
  Age: 63 Year
  Sex: Female

DRUGS (6)
  1. GLUCOPHAGE [Suspect]
     Dosage: ALSO FROM THE BATCHES OF 9L2074A.
  2. LISINOPRIL [Concomitant]
  3. ATENOLOL [Concomitant]
  4. LIPITOR [Concomitant]
  5. COSOPT [Concomitant]
     Dosage: EYE DROPS
  6. BRIMONIDINE TARTRATE [Concomitant]

REACTIONS (2)
  - PRODUCT ODOUR ABNORMAL [None]
  - BLOOD GLUCOSE INCREASED [None]
